FAERS Safety Report 4462953-5 (Version None)
Quarter: 2004Q3

REPORT INFORMATION
  Report Type: 
  Country: None (occurrence: None)
  Receive Date: 20040928
  Receipt Date: 20040914
  Transmission Date: 20050211
  Serious: Yes (Life-Threatening, Hospitalization)
  Sender: FDA-Public Use
  Company Number: 04P-056-0273262-00

PATIENT
  Age: 80 Year
  Sex: Female

DRUGS (11)
  1. BIAXIN [Suspect]
     Indication: BRONCHOPNEUMOPATHY
     Dosage: PER ORAL
     Route: 048
     Dates: start: 20040528, end: 20040601
  2. FLUINDIONE (FLUINDIONE) [Suspect]
     Indication: ATRIAL FIBRILLATION
     Dosage: 20 MG, 1 IN 1 D,  PER ORAL
     Route: 048
     Dates: end: 20040603
  3. AUGMENTIN [Suspect]
     Indication: BRONCHOPNEUMOPATHY
     Dosage: PER ORAL
     Route: 048
     Dates: start: 20040601, end: 20040601
  4. FUROSEMIDE [Concomitant]
  5. METOPROLOL TARTRATE [Concomitant]
  6. AMIODARONE HYDROCHLORIDE [Concomitant]
  7. BETAMETHASONE [Concomitant]
  8. CARBOCISTEINE [Concomitant]
  9. SOLU-MEDROL [Concomitant]
  10. SURBOX [Concomitant]
  11. TERBUTALINE SULFATE [Concomitant]

REACTIONS (16)
  - ABDOMINAL HAEMATOMA [None]
  - ABDOMINAL PAIN UPPER [None]
  - ANAEMIA [None]
  - CHEST X-RAY ABNORMAL [None]
  - COUGH [None]
  - DRUG INTERACTION [None]
  - ECCHYMOSIS [None]
  - FALL [None]
  - HYPERGLYCAEMIA [None]
  - INTERNATIONAL NORMALISED RATIO INCREASED [None]
  - LUNG DISORDER [None]
  - MALAISE [None]
  - OVERDOSE [None]
  - PELVIC MASS [None]
  - RALES [None]
  - RENAL FAILURE ACUTE [None]
